FAERS Safety Report 6496719-1 (Version None)
Quarter: 2009Q4

REPORT INFORMATION
  Report Type: 
  Country: None (occurrence: None)
  Receive Date: 20091211
  Receipt Date: 20091204
  Transmission Date: 20100525
  Serious: Yes (Hospitalization)
  Sender: FDA-Public Use
  Company Number: 2009029496

PATIENT
  Age: 57 Year
  Sex: Female
  Weight: 47.1741 kg

DRUGS (8)
  1. OTFC      ( TRANSMUCOSAL FENTANYL CITRATE) [Suspect]
     Indication: ABDOMINAL PAIN
     Dosage: (800 MCG, 3-4 PER DAY, PRN), BU
     Route: 002
     Dates: start: 20080101
  2. LEVOXYL [Concomitant]
  3. LOPRESSOR [Concomitant]
  4. COUMADIN [Concomitant]
  5. ELAVIL [Concomitant]
  6. ZANAFLEX [Concomitant]
  7. PHENERGAN (PROMETHAZINE) [Concomitant]
  8. FENTANYL PUMP (FENTANYL) [Concomitant]

REACTIONS (3)
  - CONFUSIONAL STATE [None]
  - IMPAIRED HEALING [None]
  - WEIGHT DECREASED [None]
